FAERS Safety Report 8571400 (Version 3)
Quarter: 2013Q2

REPORT INFORMATION
  Report Type: Spontaneous
  Country: US (occurrence: US)
  Receive Date: 20120521
  Receipt Date: 20130612
  Transmission Date: 20140414
  Serious: Yes (Other)
  Sender: FDA-Public Use
  Company Number: US-ROCHE-1035664

PATIENT
  Age: 22 Year
  Sex: Male
  Weight: 93.07 kg

DRUGS (4)
  1. ACCUTANE [Suspect]
     Indication: ACNE
     Route: 048
     Dates: start: 1998, end: 199903
  2. ACCUTANE [Suspect]
     Indication: CELLULITIS
     Route: 048
     Dates: start: 199901, end: 2000
  3. ACCUTANE [Suspect]
     Route: 048
     Dates: end: 199909
  4. ACCUTANE [Suspect]
     Route: 048
     Dates: start: 200005

REACTIONS (6)
  - Colitis ulcerative [Unknown]
  - Emotional distress [Unknown]
  - Anxiety [Unknown]
  - Inflammatory bowel disease [Unknown]
  - Pyoderma gangrenosum [Unknown]
  - Back pain [Unknown]
